FAERS Safety Report 24690087 (Version 1)
Quarter: 2024Q4

REPORT INFORMATION
  Report Type: Spontaneous
  Country: JP (occurrence: JP)
  Receive Date: 20241203
  Receipt Date: 20241203
  Transmission Date: 20250114
  Serious: Yes (Hospitalization)
  Sender: ASTELLAS
  Company Number: JP-ASTELLAS-2024JP005719

PATIENT
  Age: 62 Year
  Sex: Female
  Weight: 66 kg

DRUGS (33)
  1. PROGRAF [Interacting]
     Active Substance: TACROLIMUS
     Indication: Immunosuppression
     Route: 065
  2. PROGRAF [Interacting]
     Active Substance: TACROLIMUS
     Dosage: 0.2 MG, DAILY
     Route: 065
     Dates: start: 20240701, end: 20240712
  3. PROGRAF [Interacting]
     Active Substance: TACROLIMUS
     Route: 065
     Dates: start: 20240717, end: 20240718
  4. PROGRAF [Interacting]
     Active Substance: TACROLIMUS
     Route: 065
     Dates: start: 20240719
  5. VEKLURY [Interacting]
     Active Substance: REMDESIVIR
     Indication: Product used for unknown indication
     Route: 065
  6. PAXLOVID [Interacting]
     Active Substance: NIRMATRELVIR\RITONAVIR
     Indication: COVID-19 treatment
     Dosage: 2 DF 2X/DAY ([NIRMATRELVIR 150 MG]/[RITONAVIR 100 MG]; 2X/DAY)
     Route: 048
     Dates: start: 20240701, end: 20240706
  7. ITRACONAZOLE [Interacting]
     Active Substance: ITRACONAZOLE
     Indication: Infection prophylaxis
     Route: 048
  8. NEXIUM [ESOMEPRAZOLE MAGNESIUM] Capsule [Concomitant]
     Indication: Prophylaxis
     Route: 065
  9. MAGNESIUM OXIDE [Concomitant]
     Active Substance: MAGNESIUM OXIDE
     Indication: Constipation
     Route: 065
  10. FLUITRAN [TRICHLORMETHIAZIDE] Tablet [Concomitant]
     Indication: Hypertension
     Route: 065
  11. AMLODIPINE TOWA Orodispersible tablet [Concomitant]
     Indication: Hypertension
     Route: 065
  12. OLMESARTAN OD DSEP [Concomitant]
     Indication: Hypertension
     Route: 065
  13. ATARAX-P [HYDROXYZINE EMBONATE] Capsule [Concomitant]
     Indication: Product used for unknown indication
     Route: 065
  14. PARMODIA Tablet [Concomitant]
     Indication: Hyperlipidaemia
     Route: 065
  15. PREGABALIN [Concomitant]
     Active Substance: PREGABALIN
     Indication: Neuralgia
     Route: 065
  16. CELLCEPT [MYCOPHENOLATE MOFETIL] Capsule [Concomitant]
     Indication: Immunosuppression
     Route: 065
  17. OXYCONTIN TR Tablet [Concomitant]
     Indication: Analgesic therapy
     Route: 065
  18. EDIROL capsule [Concomitant]
     Indication: Osteoporosis
     Route: 065
  19. METHYCOBAL Tablet [Concomitant]
     Indication: Neuropathy peripheral
     Route: 065
  20. HYALEIN eye drops [Concomitant]
     Indication: Dry eye
     Route: 065
  21. DIQUAS eye drops [Concomitant]
     Indication: Dry eye
     Route: 065
  22. ACETAMINOPHEN [Concomitant]
     Active Substance: ACETAMINOPHEN
     Indication: Product used for unknown indication
     Route: 065
  23. CYMBALTA [Concomitant]
     Active Substance: DULOXETINE HYDROCHLORIDE
     Indication: Neuralgia
     Route: 065
  24. CELECOX tablet [Concomitant]
     Indication: Analgesic therapy
     Route: 065
  25. PREDNISOLONE [Concomitant]
     Active Substance: PREDNISOLONE
     Indication: Immunosuppression
     Route: 065
  26. ACYCLOVIR [Concomitant]
     Active Substance: ACYCLOVIR
     Indication: Infection prophylaxis
     Route: 065
  27. DAIPHEN tablet [Concomitant]
     Indication: Infection prophylaxis
     Route: 065
  28. Biofermin r Oral powder [Concomitant]
     Indication: Dysbiosis
     Route: 065
  29. Oxinorm Oral powder [Concomitant]
     Indication: Analgesic therapy
     Route: 065
  30. Oxinorm Oral powder [Concomitant]
     Route: 065
  31. Oxinorm Oral powder [Concomitant]
     Route: 065
  32. TAZOBACTAM [Concomitant]
     Active Substance: TAZOBACTAM
     Indication: COVID-19
     Route: 065
     Dates: start: 202407
  33. PIPERACILLIN [Concomitant]
     Active Substance: PIPERACILLIN
     Indication: COVID-19
     Route: 065
     Dates: start: 202407

REACTIONS (6)
  - COVID-19 [Recovered/Resolved]
  - Drug level increased [Recovering/Resolving]
  - Drug interaction [Recovered/Resolved]
  - Labelled drug-drug interaction issue [Recovered/Resolved]
  - Drug interaction [Recovered/Resolved]
  - Off label use [Unknown]

NARRATIVE: CASE EVENT DATE: 20240710
